FAERS Safety Report 9933008 (Version 2)
Quarter: 2015Q3

REPORT INFORMATION
  Report Type: Spontaneous
  Country: US (occurrence: US)
  Receive Date: 20140228
  Receipt Date: 20150820
  Transmission Date: 20151125
  Serious: Yes (Other)
  Sender: FDA-Public Use
  Company Number: US-GLAXOSMITHKLINE-A1043775A

PATIENT
  Sex: Female

DRUGS (1)
  1. LAMICTAL [Suspect]
     Active Substance: LAMOTRIGINE
     Indication: BIPOLAR DISORDER
     Dosage: 150 MG, U
     Dates: start: 20120331

REACTIONS (6)
  - Amnesia [Not Recovered/Not Resolved]
  - Liver disorder [Unknown]
  - Pneumonia [Unknown]
  - Blood aluminium [Unknown]
  - Drug ineffective [Unknown]
  - Memory impairment [Unknown]

NARRATIVE: CASE EVENT DATE: 2013
